FAERS Safety Report 21235899 (Version 1)
Quarter: 2022Q3

REPORT INFORMATION
  Report Type: Spontaneous
  Country: JP (occurrence: JP)
  Receive Date: 20220821
  Receipt Date: 20220821
  Transmission Date: 20221027
  Serious: Yes (Hospitalization)
  Sender: FDA-Public Use
  Company Number: JP-JNJFOC-20220837360

PATIENT
  Age: 66 Year
  Sex: Female

DRUGS (4)
  1. IMBRUVICA [Suspect]
     Active Substance: IBRUTINIB
     Indication: Prophylaxis against graft versus host disease
     Route: 048
     Dates: start: 20220416, end: 20220617
  2. PROGRAF [Concomitant]
     Active Substance: TACROLIMUS
     Indication: Product used for unknown indication
     Dosage: DOSE UNKNOWN
     Route: 041
     Dates: start: 20211207, end: 20220630
  3. CARBIDOPA\LEVODOPA [Concomitant]
     Active Substance: CARBIDOPA\LEVODOPA
     Indication: Product used for unknown indication
     Dosage: DOSE UNKNOWN?PERORAL MEDICINE
     Route: 048
     Dates: start: 20220308, end: 20220617
  4. ZONISAMIDE [Concomitant]
     Active Substance: ZONISAMIDE
     Indication: Product used for unknown indication
     Dosage: DOSE UNKNOWN?PERORAL MEDICINE
     Route: 048
     Dates: start: 20220313, end: 20220617

REACTIONS (4)
  - Enterocolitis [Recovered/Resolved]
  - Melaena [Recovered/Resolved]
  - Product use in unapproved indication [Unknown]
  - Off label use [Unknown]

NARRATIVE: CASE EVENT DATE: 20220416
